FAERS Safety Report 5471740-0 (Version None)
Quarter: 2007Q3

REPORT INFORMATION
  Report Type: 
  Country: None (occurrence: None)
  Receive Date: 20070928
  Receipt Date: 20070501
  Transmission Date: 20080115
  Serious: No
  Sender: FDA-Public Use
  Company Number: US-BRISTOL-MYERS SQUIBB COMPANY-13766316

PATIENT
  Age: 62 Year
  Sex: Male
  Weight: 98 kg

DRUGS (7)
  1. DEFINITY [Suspect]
     Indication: ECHOCARDIOGRAM
     Dates: start: 20070301
  2. WARFARIN [Concomitant]
  3. COREG [Concomitant]
  4. VALSARTAN [Concomitant]
  5. ASPIRIN [Concomitant]
  6. TYLENOL (CAPLET) [Concomitant]
  7. VYTORIN [Concomitant]

REACTIONS (1)
  - MUSCLE SPASMS [None]
